FAERS Safety Report 4688939-3 (Version None)
Quarter: 2005Q2

REPORT INFORMATION
  Report Type: 
  Country: None (occurrence: None)
  Receive Date: 20050613
  Receipt Date: 20050602
  Transmission Date: 20051028
  Serious: Yes (Hospitalization)
  Sender: FDA-Public Use
  Company Number: FR-ROCHE-406565

PATIENT
  Age: 71 Year
  Sex: Female

DRUGS (10)
  1. RIVOTRIL [Suspect]
     Route: 048
     Dates: start: 20050213, end: 20050216
  2. DEPAKOTE [Suspect]
     Route: 048
     Dates: start: 20050213, end: 20050216
  3. CLAMOXYL [Suspect]
     Indication: DRUG USE FOR UNKNOWN INDICATION
     Route: 048
     Dates: start: 20050211, end: 20050215
  4. OMEPRAZOLE [Concomitant]
     Route: 048
     Dates: start: 20050211, end: 20050213
  5. FLAGYL [Concomitant]
     Route: 048
     Dates: start: 20050211, end: 20050221
  6. EUPANTOL [Concomitant]
     Dates: start: 20050213
  7. TAHOR [Concomitant]
  8. NOOTROPYL [Concomitant]
  9. BETASERC [Concomitant]
  10. VEINAMITOL [Concomitant]

REACTIONS (4)
  - ECZEMA [None]
  - PRURITUS [None]
  - RASH VESICULAR [None]
  - TOXIC SKIN ERUPTION [None]
